FAERS Safety Report 20063163 (Version 4)
Quarter: 2022Q2

REPORT INFORMATION
  Report Type: Spontaneous
  Country: US (occurrence: US)
  Receive Date: 20211112
  Receipt Date: 20220426
  Transmission Date: 20220721
  Serious: Yes (Death)
  Sender: FDA-Public Use
  Company Number: US-AMNEAL PHARMACEUTICALS-2021-AMRX-04528

PATIENT
  Age: 75 Year
  Sex: Male

DRUGS (1)
  1. RYTARY [Suspect]
     Active Substance: CARBIDOPA\LEVODOPA
     Indication: Parkinson^s disease
     Dosage: UNK UNK, TID
     Route: 048
     Dates: start: 20210925

REACTIONS (2)
  - Adverse event [Fatal]
  - Illness [Recovered/Resolved]

NARRATIVE: CASE EVENT DATE: 20211031
